FAERS Safety Report 26213394 (Version 1)
Quarter: 2025Q4

REPORT INFORMATION
  Report Type: Spontaneous
  Country: US (occurrence: US)
  Receive Date: 20251230
  Receipt Date: 20251230
  Transmission Date: 20260118
  Serious: Yes (Hospitalization)
  Sender: MYLAN
  Company Number: US-MYLANLABS-2025M1109905

PATIENT
  Age: 51 Year
  Sex: Female

DRUGS (16)
  1. RIFAMPIN [Suspect]
     Active Substance: RIFAMPIN
     Indication: Latent tuberculosis
     Dosage: UNK
     Route: 065
  2. RIFAMPIN [Suspect]
     Active Substance: RIFAMPIN
     Dosage: UNK
  3. RIFAMPIN [Suspect]
     Active Substance: RIFAMPIN
     Dosage: UNK
  4. RIFAMPIN [Suspect]
     Active Substance: RIFAMPIN
     Dosage: UNK
     Route: 065
  5. RIFAMPIN [Suspect]
     Active Substance: RIFAMPIN
     Dosage: UNK;  THERAPY STOPPED, RE-INITIATED AND STOPPED
     Route: 065
  6. RIFAMPIN [Suspect]
     Active Substance: RIFAMPIN
     Dosage: UNK;  THERAPY STOPPED, RE-INITIATED AND STOPPED
  7. RIFAMPIN [Suspect]
     Active Substance: RIFAMPIN
     Dosage: UNK;  THERAPY STOPPED, RE-INITIATED AND STOPPED
  8. RIFAMPIN [Suspect]
     Active Substance: RIFAMPIN
     Dosage: UNK;  THERAPY STOPPED, RE-INITIATED AND STOPPED
     Route: 065
  9. ISONIAZID [Suspect]
     Active Substance: ISONIAZID
     Indication: Latent tuberculosis
     Dosage: UNK
     Route: 065
  10. ISONIAZID [Suspect]
     Active Substance: ISONIAZID
     Dosage: UNK
  11. ISONIAZID [Suspect]
     Active Substance: ISONIAZID
     Dosage: UNK
  12. ISONIAZID [Suspect]
     Active Substance: ISONIAZID
     Dosage: UNK
     Route: 065
  13. ISONIAZID [Suspect]
     Active Substance: ISONIAZID
     Dosage: UNK; THERAPY STOPPED, RE-INITIATED AND STOPPED
     Route: 065
  14. ISONIAZID [Suspect]
     Active Substance: ISONIAZID
     Dosage: UNK; THERAPY STOPPED, RE-INITIATED AND STOPPED
  15. ISONIAZID [Suspect]
     Active Substance: ISONIAZID
     Dosage: UNK; THERAPY STOPPED, RE-INITIATED AND STOPPED
  16. ISONIAZID [Suspect]
     Active Substance: ISONIAZID
     Dosage: UNK; THERAPY STOPPED, RE-INITIATED AND STOPPED
     Route: 065

REACTIONS (1)
  - Type III immune complex mediated reaction [Recovered/Resolved]
